FAERS Safety Report 17876564 (Version 1)
Quarter: 2020Q2

REPORT INFORMATION
  Report Type: Spontaneous
  Country: BE (occurrence: BE)
  Receive Date: 20200609
  Receipt Date: 20200609
  Transmission Date: 20200714
  Serious: Yes (Life-Threatening)
  Sender: FDA-Public Use
  Company Number: BE-ROCHE-2617381

PATIENT
  Sex: Male

DRUGS (1)
  1. ERIVEDGE [Suspect]
     Active Substance: VISMODEGIB
     Indication: PRODUCT USED FOR UNKNOWN INDICATION
     Route: 065

REACTIONS (4)
  - Endocarditis [Not Recovered/Not Resolved]
  - Metabolic acidosis [Not Recovered/Not Resolved]
  - Intervertebral discitis [Not Recovered/Not Resolved]
  - Weight decreased [Not Recovered/Not Resolved]
